APPROVED DRUG PRODUCT: OXALIPLATIN
Active Ingredient: OXALIPLATIN
Strength: 100MG/20ML (5MG/ML)
Dosage Form/Route: INJECTABLE;INTRAVENOUS
Application: A204368 | Product #002 | TE Code: AP
Applicant: QILU PHARMACEUTICAL HAINAN CO LTD
Approved: Jun 7, 2016 | RLD: No | RS: No | Type: RX